FAERS Safety Report 23193008 (Version 4)
Quarter: 2024Q1

REPORT INFORMATION
  Report Type: Other
  Country: US (occurrence: US)
  Receive Date: 20231116
  Receipt Date: 20240210
  Transmission Date: 20240409
  Serious: No
  Sender: FDA-Public Use
  Company Number: US-TRAVERE-2023TVT00704

PATIENT
  Sex: Male

DRUGS (11)
  1. FILSPARI [Suspect]
     Active Substance: SPARSENTAN
     Indication: IgA nephropathy
     Dosage: 400 MG
     Route: 048
     Dates: start: 20231012
  2. ALLOPURINOL [Concomitant]
     Active Substance: ALLOPURINOL
  3. AMLODIPINE BESYLATE [Concomitant]
     Active Substance: AMLODIPINE BESYLATE
  4. EZETIMIBE [Concomitant]
     Active Substance: EZETIMIBE
  5. FARXIGA [Concomitant]
     Active Substance: DAPAGLIFLOZIN PROPANEDIOL
  6. FUROSEMIDE [Concomitant]
     Active Substance: FUROSEMIDE
  7. HYDROCHLOROTHIAZIDE [Concomitant]
     Active Substance: HYDROCHLOROTHIAZIDE
  8. METOPROLOL SUCCINATE [Concomitant]
     Active Substance: METOPROLOL SUCCINATE
  9. OMEGA-3 ACID ETHYL EST [Concomitant]
  10. PRAVASTATIN SODIUM [Concomitant]
     Active Substance: PRAVASTATIN SODIUM
  11. PEPTO-BISMOL [Concomitant]
     Active Substance: BISMUTH SUBSALICYLATE

REACTIONS (4)
  - Dyspnoea [Unknown]
  - Dizziness postural [Unknown]
  - Drug effect less than expected [Unknown]
  - Hypotension [Recovered/Resolved]
